FAERS Safety Report 7471077-4 (Version None)
Quarter: 2011Q2

REPORT INFORMATION
  Report Type: 
  Country: None (occurrence: None)
  Receive Date: 20110506
  Receipt Date: 20110506
  Transmission Date: 20111010
  Serious: Yes (Other)
  Sender: FDA-Public Use
  Company Number: None

PATIENT
  Age: 77 Year
  Sex: Female
  Weight: 65.7716 kg

DRUGS (1)
  1. TRIBENZOR [Suspect]
     Indication: BLOOD PRESSURE
     Dosage: 40/5/25 1 PER DAY
     Dates: start: 20101201

REACTIONS (1)
  - HEART RATE IRREGULAR [None]
